FAERS Safety Report 7080021-3 (Version None)
Quarter: 2010Q4

REPORT INFORMATION
  Report Type: 
  Country: None (occurrence: None)
  Receive Date: 20101102
  Receipt Date: 20100630
  Transmission Date: 20110411
  Serious: No
  Sender: FDA-Public Use
  Company Number: US-ABBOTT-10P-163-0654328-00

PATIENT
  Age: 42 Year
  Sex: Female

DRUGS (2)
  1. BIAXIN [Suspect]
     Indication: EAR INFECTION
     Route: 050
     Dates: start: 20100610, end: 20100624
  2. LEXAPRO [Suspect]
     Indication: ANXIETY
     Route: 048
     Dates: start: 20100401

REACTIONS (3)
  - ANXIETY [None]
  - EAR INFECTION [None]
  - FATIGUE [None]
